FAERS Safety Report 18497772 (Version 2)
Quarter: 2020Q4

REPORT INFORMATION
  Report Type: Spontaneous
  Country: JP (occurrence: JP)
  Receive Date: 20201112
  Receipt Date: 20201224
  Transmission Date: 20210114
  Serious: Yes (Other)
  Sender: FDA-Public Use
  Company Number: NVSC2020JP302633

PATIENT
  Age: 64 Year
  Sex: Male
  Weight: 62.75 kg

DRUGS (11)
  1. CLOPIDOGREL [Suspect]
     Active Substance: CLOPIDOGREL BISULFATE
     Indication: BRAIN STEM INFARCTION
     Dosage: 75 MG, QD
     Route: 048
     Dates: start: 20200409, end: 20200413
  2. NOVASTAN [Suspect]
     Active Substance: ARGATROBAN
     Indication: EMBOLIC STROKE
     Dosage: 10 MG, BID
     Route: 041
     Dates: start: 20200411, end: 20200413
  3. NOVASTAN [Suspect]
     Active Substance: ARGATROBAN
     Indication: CEREBRAL INFARCTION
  4. CILOSTAZOL. [Suspect]
     Active Substance: CILOSTAZOL
     Indication: CEREBRAL INFARCTION
     Dosage: 200 MG, QD
     Route: 048
     Dates: start: 20200421
  5. CLOPIDOGREL [Suspect]
     Active Substance: CLOPIDOGREL BISULFATE
     Indication: EMBOLIC STROKE
  6. CLOPIDOGREL [Suspect]
     Active Substance: CLOPIDOGREL BISULFATE
     Indication: CEREBRAL INFARCTION
  7. SEISHOKU [Concomitant]
     Active Substance: SODIUM CHLORIDE
     Indication: CEREBRAL INFARCTION
     Dosage: UNK
     Route: 065
     Dates: start: 20200409, end: 20200413
  8. CILOSTAZOL. [Suspect]
     Active Substance: CILOSTAZOL
     Indication: BRAIN STEM INFARCTION
     Dosage: 200 MG, QD
     Route: 048
     Dates: start: 20200410, end: 20200413
  9. NOVASTAN [Suspect]
     Active Substance: ARGATROBAN
     Indication: BRAIN STEM INFARCTION
     Dosage: 60 MG, QD 10 MG/2ML
     Route: 041
     Dates: start: 20200409, end: 20200411
  10. LANSOPRAZOLE. [Concomitant]
     Active Substance: LANSOPRAZOLE
     Indication: CEREBRAL INFARCTION
     Dosage: UNK
     Route: 065
     Dates: start: 20200409
  11. THEOPHYLLINE [Concomitant]
     Active Substance: THEOPHYLLINE ANHYDROUS
     Indication: ASTHMA
     Dosage: UNK
     Route: 065

REACTIONS (3)
  - Diverticulum intestinal haemorrhagic [Recovered/Resolved]
  - Product use in unapproved indication [Unknown]
  - Gastrointestinal haemorrhage [Recovering/Resolving]

NARRATIVE: CASE EVENT DATE: 20200413
